FAERS Safety Report 5166146-8 (Version None)
Quarter: 2006Q4

REPORT INFORMATION
  Report Type: 
  Country: None (occurrence: None)
  Receive Date: 20061129
  Receipt Date: 20061113
  Transmission Date: 20070319
  Serious: Yes (Death, Hospitalization)
  Sender: FDA-Public Use
  Company Number: E3810-00431-SOL-US

PATIENT
  Age: 96 Year
  Sex: Female
  Weight: 39 kg

DRUGS (2)
  1. ACIPHEX [Suspect]
     Dosage: ORAL
     Route: 048
     Dates: start: 20061001
  2. PLAVIX [Concomitant]

REACTIONS (1)
  - PNEUMONIA [None]
